FAERS Safety Report 11148530 (Version 1)
Quarter: 2015Q2

REPORT INFORMATION
  Report Type: Spontaneous
  Country: BN (occurrence: BN)
  Receive Date: 20150529
  Receipt Date: 20150529
  Transmission Date: 20150821
  Serious: Yes (Hospitalization)
  Sender: FDA-Public Use
  Company Number: BN-PFIZER INC-2015177763

PATIENT

DRUGS (1)
  1. XALKORI [Suspect]
     Active Substance: CRIZOTINIB
     Indication: NON-SMALL CELL LUNG CANCER METASTATIC
     Dosage: 250 MG, 2X/DAY
     Route: 048
     Dates: start: 20140701, end: 20150513

REACTIONS (4)
  - Renal haematoma [Not Recovered/Not Resolved]
  - Renal impairment [Not Recovered/Not Resolved]
  - Haemorrhage [Not Recovered/Not Resolved]
  - Renal cyst [Not Recovered/Not Resolved]
